FAERS Safety Report 11095187 (Version 1)
Quarter: 2015Q2

REPORT INFORMATION
  Report Type: Spontaneous
  Country: US (occurrence: US)
  Receive Date: 20150506
  Receipt Date: 20150506
  Transmission Date: 20150821
  Serious: No
  Sender: FDA-Public Use
  Company Number: US-SA-2014SA107646

PATIENT
  Age: 62 Year
  Sex: Female

DRUGS (5)
  1. SOLOSTAR [Suspect]
     Active Substance: DEVICE
     Indication: TYPE 2 DIABETES MELLITUS
     Dosage: FREQUENCY SLIDING SCALE
     Dates: start: 201407
  2. LEVEMIR [Concomitant]
     Active Substance: INSULIN DETEMIR
  3. SOLOSTAR [Suspect]
     Active Substance: DEVICE
     Indication: TYPE 2 DIABETES MELLITUS
     Dosage: FREQUENCY SLIDING SCALE
     Dates: start: 201407
  4. APIDRA SOLOSTAR [Suspect]
     Active Substance: INSULIN GLULISINE
     Indication: TYPE 2 DIABETES MELLITUS
     Dosage: FREQUENCY SLIDING SCALE DOSE:20 UNIT(S)
     Route: 065
     Dates: start: 201407
  5. APIDRA SOLOSTAR [Suspect]
     Active Substance: INSULIN GLULISINE
     Indication: TYPE 2 DIABETES MELLITUS
     Dosage: FREQUENCY SLIDING SCALE DOSE:20 UNIT(S)
     Route: 065
     Dates: start: 201407

REACTIONS (1)
  - Blood glucose increased [Unknown]
